FAERS Safety Report 25839173 (Version 1)
Quarter: 2025Q3

REPORT INFORMATION
  Report Type: Report from Study
  Country: US (occurrence: US)
  Receive Date: 20250924
  Receipt Date: 20250924
  Transmission Date: 20251021
  Serious: Yes (Other)
  Sender: GALDERMA
  Company Number: US-GALDERMA-US2025018027

PATIENT

DRUGS (3)
  1. NEMOLIZUMAB [Suspect]
     Active Substance: NEMOLIZUMAB
     Indication: Neurodermatitis
     Route: 058
     Dates: start: 20250824, end: 20250824
  2. NEMOLIZUMAB [Suspect]
     Active Substance: NEMOLIZUMAB
     Indication: Dermatitis atopic
  3. NEMOLIZUMAB [Suspect]
     Active Substance: NEMOLIZUMAB
     Indication: Dermatitis

REACTIONS (4)
  - Skull fracture [Unknown]
  - Head injury [Unknown]
  - Dizziness [Not Recovered/Not Resolved]
  - Product dose omission issue [Recovered/Resolved]

NARRATIVE: CASE EVENT DATE: 20250824
